FAERS Safety Report 8436804-8 (Version None)
Quarter: 2012Q2

REPORT INFORMATION
  Report Type: 
  Country: None (occurrence: None)
  Receive Date: 20120614
  Receipt Date: 20120606
  Transmission Date: 20120825
  Serious: Yes (Other)
  Sender: FDA-Public Use
  Company Number: US-CELGENEUS-163-21660-12061202

PATIENT

DRUGS (3)
  1. ABRAXANE [Suspect]
     Dosage: 100 MILLIGRAM/SQ. METER
     Route: 041
  2. CAPECITABINE [Suspect]
     Dosage: 750 MILLIGRAM/SQ. METER
     Route: 041
  3. GEMCITABINE [Suspect]
     Dosage: 750 MILLIGRAM/SQ. METER
     Route: 041

REACTIONS (5)
  - LIVER FUNCTION TEST ABNORMAL [None]
  - NEUTROPHIL COUNT DECREASED [None]
  - NAUSEA [None]
  - FATIGUE [None]
  - VOMITING [None]
